FAERS Safety Report 8239976-3 (Version None)
Quarter: 2012Q1

REPORT INFORMATION
  Report Type: 
  Country: None (occurrence: None)
  Receive Date: 20120328
  Receipt Date: 20120319
  Transmission Date: 20120608
  Serious: Yes (Hospitalization)
  Sender: FDA-Public Use
  Company Number: US-BAYER-2011-058303

PATIENT
  Age: 21 Year
  Sex: Female
  Weight: 49.433 kg

DRUGS (2)
  1. YAZ [Suspect]
     Indication: ORAL CONTRACEPTION
     Dosage: UNK
     Dates: start: 20080101, end: 20090101
  2. VICODIN [Concomitant]
     Indication: PAIN
     Dosage: UNK
     Route: 048
     Dates: start: 20090621

REACTIONS (5)
  - GALLBLADDER NON-FUNCTIONING [None]
  - PAIN [None]
  - INJURY [None]
  - CHOLECYSTITIS [None]
  - PANCREATITIS [None]
